FAERS Safety Report 5333028-8 (Version None)
Quarter: 2007Q2

REPORT INFORMATION
  Report Type: 
  Country: None (occurrence: None)
  Receive Date: 20070306
  Receipt Date: 20061213
  Transmission Date: 20071010
  Serious: Yes (Hospitalization)
  Sender: FDA-Public Use
  Company Number: A03200606510

PATIENT
  Age: 70 Year
  Sex: Male
  Weight: 66.2252 kg

DRUGS (8)
  1. PLAVIX [Suspect]
     Indication: MYOCARDIAL INFARCTION
     Dosage: 75 MG QD - ORAL
     Route: 048
     Dates: start: 20060324, end: 20061101
  2. PLAVIX [Suspect]
     Indication: STENT PLACEMENT
     Dosage: 75 MG QD - ORAL
     Route: 048
     Dates: start: 20060324, end: 20061101
  3. PLAVIX [Suspect]
     Indication: MYOCARDIAL INFARCTION
     Dosage: 37.5 MG QD - ORAL
     Route: 048
     Dates: start: 20061102, end: 20061122
  4. PLAVIX [Suspect]
     Indication: STENT PLACEMENT
     Dosage: 37.5 MG QD - ORAL
     Route: 048
     Dates: start: 20061102, end: 20061122
  5. PHENOBARBITAL TAB [Concomitant]
  6. PRIMIDONE [Concomitant]
  7. FAMOTIDINE [Concomitant]
  8. ATORVASTATIN [Concomitant]

REACTIONS (10)
  - BACK PAIN [None]
  - CHEST PAIN [None]
  - COUGH [None]
  - DEPRESSED MOOD [None]
  - DIZZINESS [None]
  - GASTROINTESTINAL HAEMORRHAGE [None]
  - HAEMORRHAGE [None]
  - IMMUNE SYSTEM DISORDER [None]
  - VESSEL PUNCTURE SITE HAEMATOMA [None]
  - WHITE BLOOD CELL COUNT INCREASED [None]
